FAERS Safety Report 13721659 (Version 1)
Quarter: 2017Q3

REPORT INFORMATION
  Report Type: Spontaneous
  Country: US (occurrence: US)
  Receive Date: 20170706
  Receipt Date: 20170706
  Transmission Date: 20171127
  Serious: No
  Sender: FDA-Public Use
  Company Number: US-HORIZON-DUE-0050-2017

PATIENT
  Age: 60 Year
  Sex: Female

DRUGS (1)
  1. DUEXIS [Suspect]
     Active Substance: FAMOTIDINE\IBUPROFEN
     Indication: FIBROMYALGIA
     Dosage: AS NEEDED

REACTIONS (2)
  - Musculoskeletal pain [Recovering/Resolving]
  - Off label use [Unknown]
